FAERS Safety Report 7786605-9 (Version None)
Quarter: 2011Q3

REPORT INFORMATION
  Report Type: 
  Country: None (occurrence: None)
  Receive Date: 20110929
  Receipt Date: 20110919
  Transmission Date: 20111222
  Serious: No
  Sender: FDA-Public Use
  Company Number: CA-ELI_LILLY_AND_COMPANY-CA201109005163

PATIENT
  Sex: Male

DRUGS (8)
  1. ZYPREXA [Suspect]
     Indication: DEMENTIA
     Dosage: 2.5 MG, BID
  2. LOXAPINE [Concomitant]
  3. ZYPREXA ZYDIS [Suspect]
     Indication: DEMENTIA
     Dosage: 5 MG, EACH EVENING
  4. ZOPICLONE [Concomitant]
  5. SINEMET [Concomitant]
  6. QUETIAPINE [Concomitant]
  7. MIRTAZAPINE [Concomitant]
  8. SIMVASTATIN [Concomitant]

REACTIONS (5)
  - CORONARY ARTERY DISEASE [None]
  - ENTEROCOCCAL INFECTION [None]
  - DIABETES MELLITUS [None]
  - THROMBOCYTOPENIA [None]
  - OFF LABEL USE [None]
